FAERS Safety Report 22071064 (Version 1)
Quarter: 2023Q1

REPORT INFORMATION
  Report Type: Report from Study
  Country: US (occurrence: US)
  Receive Date: 20230307
  Receipt Date: 20230307
  Transmission Date: 20230418
  Serious: Yes (Death, Hospitalization, Other)
  Sender: FDA-Public Use
  Company Number: US-PFIZER INC-PV202300042038

PATIENT

DRUGS (1)
  1. DEXTRAN [Suspect]
     Active Substance: DEXTRAN
     Dosage: UNK

REACTIONS (1)
  - Myocardial infarction [Fatal]
